FAERS Safety Report 6574480-X (Version None)
Quarter: 2010Q1

REPORT INFORMATION
  Report Type: 
  Country: None (occurrence: None)
  Receive Date: 20100209
  Receipt Date: 20090928
  Transmission Date: 20100710
  Serious: No
  Sender: FDA-Public Use
  Company Number: A0805802A

PATIENT
  Age: 49 Year
  Sex: Female

DRUGS (3)
  1. PAROXETINE HCL [Suspect]
     Indication: PANIC DISORDER
     Route: 048
     Dates: start: 19940101
  2. CRESTOR [Concomitant]
  3. TOPROL-XL [Concomitant]

REACTIONS (1)
  - HYPERHIDROSIS [None]
